FAERS Safety Report 17135248 (Version 3)
Quarter: 2019Q4

REPORT INFORMATION
  Report Type: Spontaneous
  Country: JP (occurrence: JP)
  Receive Date: 20191210
  Receipt Date: 20191230
  Transmission Date: 20200122
  Serious: Yes (Death, Other)
  Sender: FDA-Public Use
  Company Number: JP-UCBSA-2019052920

PATIENT
  Age: 72 Year
  Sex: Female

DRUGS (1)
  1. E KEPPRA [Suspect]
     Active Substance: LEVETIRACETAM
     Indication: PRODUCT USED FOR UNKNOWN INDICATION
     Dosage: UNK
     Route: 048

REACTIONS (4)
  - Hepatic failure [Fatal]
  - Somnolence [Unknown]
  - Hepatic encephalopathy [Unknown]
  - Altered state of consciousness [Fatal]

NARRATIVE: CASE EVENT DATE: 20191202
